FAERS Safety Report 8446098-5 (Version None)
Quarter: 2012Q2

REPORT INFORMATION
  Report Type: 
  Country: None (occurrence: None)
  Receive Date: 20120618
  Receipt Date: 20120612
  Transmission Date: 20120825
  Serious: Yes (Other)
  Sender: FDA-Public Use
  Company Number: US-PFIZER INC-2012108301

PATIENT
  Sex: Male
  Weight: 72.6 kg

DRUGS (2)
  1. LYRICA [Suspect]
     Indication: HERPES ZOSTER
     Dosage: 75 MG, 2X/DAY
     Route: 048
     Dates: start: 20120430
  2. VALACICLOVIR [Concomitant]
     Indication: HERPES ZOSTER
     Dosage: 1 MG

REACTIONS (4)
  - MENTAL IMPAIRMENT [None]
  - BRADYPHRENIA [None]
  - NERVOUS SYSTEM DISORDER [None]
  - CONFUSIONAL STATE [None]
